FAERS Safety Report 5865734-0 (Version None)
Quarter: 2008Q3

REPORT INFORMATION
  Report Type: 
  Country: None (occurrence: None)
  Receive Date: 20080829
  Receipt Date: 20080821
  Transmission Date: 20090109
  Serious: Yes (Other)
  Sender: FDA-Public Use
  Company Number: PHHY2008GB19155

PATIENT
  Age: 64 Year
  Sex: Female

DRUGS (6)
  1. TEGRETOL [Suspect]
     Indication: POST HERPETIC NEURALGIA
     Dosage: 200 MG
     Route: 048
     Dates: start: 20080701, end: 20080801
  2. ADCAL-D3 [Concomitant]
     Route: 048
  3. ALENDRONIC ACID [Concomitant]
     Route: 048
  4. CEPHALEXIN [Concomitant]
     Indication: PROPHYLAXIS
     Dosage: 250 MG
     Route: 048
  5. CLONIDINE [Concomitant]
     Indication: MENOPAUSAL SYMPTOMS
     Dosage: 50 MG
     Route: 048
  6. RAMIPRIL [Concomitant]
     Indication: HYPERTENSION
     Dosage: 2.5 MG
     Route: 048

REACTIONS (4)
  - ATAXIA [None]
  - INSOMNIA [None]
  - NAUSEA [None]
  - TREMOR [None]
